FAERS Safety Report 8306450-5 (Version None)
Quarter: 2012Q2

REPORT INFORMATION
  Report Type: 
  Country: None (occurrence: None)
  Receive Date: 20120424
  Receipt Date: 20120416
  Transmission Date: 20120825
  Serious: Yes (Hospitalization, Other)
  Sender: FDA-Public Use
  Company Number: PHHY2012FR033386

PATIENT
  Sex: Male
  Weight: 72 kg

DRUGS (14)
  1. VANCOMYCIN HCL [Suspect]
     Dosage: 42 MG/L, UNK
     Dates: start: 20120312
  2. SERETIDE ^ALLEN + HANBURYS LTD^ [Concomitant]
     Dosage: 2 DF, 1 IN THE MORNING AND 1 IN THE EVENING
  3. AMLODIPINE BESYLATE [Concomitant]
     Dosage: 1 DF,DAILY
  4. VANCOMYCIN HCL [Suspect]
     Dosage: 30 MG/L, UNK
     Dates: start: 20120314
  5. SPIRIVA [Concomitant]
     Dosage: 1 DF, QD
  6. VANCOMYCIN HCL [Suspect]
     Dosage: 30 MG/L, UNK
     Dates: start: 20120318, end: 20120319
  7. ATORVASTATIN [Concomitant]
     Dosage: 1 DF, DAILY
  8. VANCOMYCIN HCL [Suspect]
     Indication: STAPHYLOCOCCAL INFECTION
     Dosage: 3 G, PER 24 HOURS
     Dates: start: 20120303
  9. VANCOMYCIN HCL [Suspect]
     Dosage: 40 MG/ML, UNK
     Dates: start: 20120317
  10. VANCOMYCIN HCL [Suspect]
     Dosage: 50 MG/L, UNK
     Dates: start: 20120316
  11. VANCOMYCIN HCL [Suspect]
     Dosage: 35 MG/L, UNK
     Dates: start: 20120313
  12. OMEPRAZOLE [Concomitant]
     Dosage: 40 MG, DAILY
  13. VANCOMYCIN HCL [Suspect]
     Dosage: 31 MG/L, UNK
     Dates: start: 20120314
  14. ASPIRIN [Concomitant]
     Dosage: 1 DF, DAILY

REACTIONS (8)
  - PYREXIA [None]
  - BLOOD CREATININE INCREASED [None]
  - OVERDOSE [None]
  - HYPERSENSITIVITY [None]
  - VASCULAR PURPURA [None]
  - NECROSIS [None]
  - PETECHIAE [None]
  - SEPSIS [None]
